FAERS Safety Report 7649015-0 (Version None)
Quarter: 2011Q3

REPORT INFORMATION
  Report Type: 
  Country: None (occurrence: None)
  Receive Date: 20110802
  Receipt Date: 20110720
  Transmission Date: 20111222
  Serious: Yes (Other)
  Sender: FDA-Public Use
  Company Number: US-ASTRAZENECA-2008UW25900

PATIENT
  Age: 513 Month
  Sex: Male
  Weight: 123.8 kg

DRUGS (30)
  1. REMERON [Concomitant]
     Dates: start: 20081201
  2. ACETAMINOPHEN [Concomitant]
     Dates: start: 20040709
  3. LORATADINE [Concomitant]
     Dates: start: 20070116
  4. SEROQUEL [Suspect]
     Indication: ANXIETY
     Dosage: 25 TO 300 MG
     Route: 048
     Dates: start: 20040105
  5. EFFEXOR XR [Concomitant]
     Dates: start: 20040105
  6. DELTASONE [Concomitant]
     Dates: start: 20031022
  7. DOXYCYCLINE [Concomitant]
     Dates: start: 20031104
  8. SIMVASTATIN [Concomitant]
     Dates: start: 20070116
  9. MUCINEX [Concomitant]
     Dates: start: 20040819
  10. ZYPREXA [Concomitant]
     Dates: start: 20021008, end: 20040213
  11. BENZONATATE [Concomitant]
     Dates: start: 20031107
  12. TRAMADOL HCL [Concomitant]
     Dates: start: 20031203
  13. FAMOTIDINE [Concomitant]
     Dates: start: 20040819
  14. WARFARIN SODIUM [Concomitant]
     Dates: start: 20061103
  15. SEROQUEL [Suspect]
     Indication: DEPRESSION
     Dosage: 25 TO 300 MG
     Route: 048
     Dates: start: 20040105
  16. CLONAZEPAM [Concomitant]
     Dates: start: 20021106
  17. GUAIFEN-PSE [Concomitant]
     Dosage: 600/12
     Dates: start: 20031111
  18. SEROQUEL [Suspect]
     Route: 048
     Dates: start: 20070702
  19. SEROQUEL [Suspect]
     Route: 048
     Dates: start: 20070702
  20. REMERON [Concomitant]
     Dates: start: 20030101, end: 20030101
  21. NAPROXEN [Concomitant]
     Dates: start: 20030924
  22. ENALAPRIL MALEATE [Concomitant]
     Dates: start: 20031022
  23. SEROQUEL [Suspect]
     Indication: BIPOLAR DISORDER
     Dosage: 25 TO 300 MG
     Route: 048
     Dates: start: 20040105
  24. PROTONIX [Concomitant]
     Dates: start: 20030924
  25. AVANDIA [Concomitant]
     Dates: start: 20030926
  26. PRILOSEC [Concomitant]
     Dates: start: 20070116
  27. SEROQUEL [Suspect]
     Route: 048
     Dates: start: 20070702
  28. EFFEXOR XR [Concomitant]
     Dates: start: 20021024
  29. CYCLOBENZAPRINE [Concomitant]
     Dates: start: 20030110
  30. PREDNISONE [Concomitant]
     Dates: start: 20031203

REACTIONS (8)
  - OBESITY [None]
  - PULMONARY EMBOLISM [None]
  - CARDIAC DISORDER [None]
  - DEEP VEIN THROMBOSIS [None]
  - DIABETES MELLITUS [None]
  - COUGH [None]
  - CHEST PAIN [None]
  - DYSPNOEA [None]
